FAERS Safety Report 4562408-3 (Version None)
Quarter: 2005Q1

REPORT INFORMATION
  Report Type: 
  Country: None (occurrence: None)
  Receive Date: 20050127
  Receipt Date: 20040929
  Transmission Date: 20050727
  Serious: No
  Sender: FDA-Public Use
  Company Number: US-BRISTOL-MYERS SQUIBB COMPANY-12716395

PATIENT
  Age: 40 Year
  Sex: Female
  Weight: 57 kg

DRUGS (3)
  1. KENALOG-10 [Suspect]
     Indication: NECK PAIN
  2. KENALOG-10 [Suspect]
     Indication: HEADACHE
  3. CLORAZEPATE DIPOTASSIUM [Concomitant]

REACTIONS (1)
  - INJECTION SITE REACTION [None]
